FAERS Safety Report 7792984-9 (Version None)
Quarter: 2011Q4

REPORT INFORMATION
  Report Type: 
  Country: None (occurrence: None)
  Receive Date: 20111003
  Receipt Date: 20110929
  Transmission Date: 20120403
  Serious: Yes (Life-Threatening, Hospitalization, Other)
  Sender: FDA-Public Use
  Company Number: PHHY2011ES84377

PATIENT
  Age: 77 Year
  Sex: Male

DRUGS (4)
  1. SEROQUEL XR [Interacting]
     Dosage: 400 MG, UNK
     Dates: start: 20110701
  2. CLONAZEPAM [Interacting]
     Dosage: 5 MG, UNK
     Route: 048
     Dates: start: 20110701
  3. COMTAN [Suspect]
     Dosage: 200 MG, UNK
     Route: 048
     Dates: start: 20110701
  4. MADOPAR [Interacting]
     Dosage: 375 MG, UNK
     Route: 048
     Dates: start: 20110701

REACTIONS (3)
  - DEPRESSED LEVEL OF CONSCIOUSNESS [None]
  - DRUG INTERACTION [None]
  - WRONG DRUG ADMINISTERED [None]
